FAERS Safety Report 20798927 (Version 1)
Quarter: 2022Q2

REPORT INFORMATION
  Report Type: Spontaneous
  Country: CA (occurrence: CA)
  Receive Date: 20220507
  Receipt Date: 20220507
  Transmission Date: 20220721
  Serious: Yes (Hospitalization, Other)
  Sender: FDA-Public Use
  Company Number: CA-AstraZeneca-2018SE84423

PATIENT
  Age: 45 Year
  Sex: Female
  Weight: 230 kg

DRUGS (33)
  1. ALVESCO [Suspect]
     Active Substance: CICLESONIDE
     Indication: Product used for unknown indication
     Dosage: 2 PUFF(S) BID
     Route: 065
  2. FORMOTEROL FUMARATE [Suspect]
     Active Substance: FORMOTEROL FUMARATE
     Indication: Product used for unknown indication
     Dosage: 2 PUFF(S) BID
     Route: 065
  3. SINGULAIR [Suspect]
     Active Substance: MONTELUKAST SODIUM
     Indication: Product used for unknown indication
     Dosage: 10 MG , 1D AT BEDTIME
     Route: 065
  4. XOLAIR [Suspect]
     Active Substance: OMALIZUMAB
     Indication: Product used for unknown indication
     Route: 065
  5. PREDNISONE [Suspect]
     Active Substance: PREDNISONE
     Indication: Product used for unknown indication
     Dosage: UNK
     Route: 065
  6. ALBUTEROL SULFATE [Suspect]
     Active Substance: ALBUTEROL SULFATE
     Indication: Product used for unknown indication
     Route: 065
  7. ALBUTEROL SULFATE [Suspect]
     Active Substance: ALBUTEROL SULFATE
     Indication: Product used for unknown indication
     Dosage: 2 PUFF(S) UNK
     Route: 065
  8. ZENHALE [Suspect]
     Active Substance: FORMOTEROL FUMARATE\MOMETASONE FUROATE
     Indication: Product used for unknown indication
     Dosage: 2 PUFF(S) BID
     Route: 065
  9. NUCALA [Suspect]
     Active Substance: MEPOLIZUMAB
     Indication: Product used for unknown indication
     Dosage: UNK
     Route: 065
  10. OMALIZUMAB [Suspect]
     Active Substance: OMALIZUMAB
     Indication: Product used for unknown indication
     Dosage: UNK
     Route: 065
  11. FLUTICASONE FUROATE [Concomitant]
     Active Substance: FLUTICASONE FUROATE
     Indication: Product used for unknown indication
     Dosage: UNK,UNK , PM
  12. CANDESARTAN [Concomitant]
     Active Substance: CANDESARTAN
     Indication: Product used for unknown indication
     Dosage: 32 MG , 1 D
  13. CARDIZEM [Concomitant]
     Active Substance: DILTIAZEM HYDROCHLORIDE
     Indication: Product used for unknown indication
     Dosage: 300 MG , UNK300.0MG UNKNOWN
  14. CETIRIZINE [Concomitant]
     Active Substance: CETIRIZINE HYDROCHLORIDE
     Indication: Product used for unknown indication
     Dosage: 10 MG , BID
  15. DULOXETINE [Concomitant]
     Active Substance: DULOXETINE
     Indication: Product used for unknown indication
     Dosage: 30 MG , QD IN THE MORNING
  16. GLYBURIDE [Concomitant]
     Active Substance: GLYBURIDE
     Indication: Product used for unknown indication
     Dosage: UNK
  17. JANUVIA [Concomitant]
     Active Substance: SITAGLIPTIN PHOSPHATE
     Indication: Product used for unknown indication
     Dosage: UNK
  18. LABETALOL [Concomitant]
     Active Substance: LABETALOL\LABETALOL HYDROCHLORIDE
     Indication: Product used for unknown indication
     Dosage: 100 MG , BID
  19. LASIX [Concomitant]
     Active Substance: FUROSEMIDE
     Indication: Product used for unknown indication
     Dosage: 20 MG , 1 D
  20. METFORMIN [Concomitant]
     Active Substance: METFORMIN HYDROCHLORIDE
     Indication: Product used for unknown indication
     Dosage: 1000 MG , BID
  21. MOMETASONE FUROATE [Concomitant]
     Active Substance: MOMETASONE FUROATE
     Indication: Product used for unknown indication
     Dosage: 1 DF , BID , 400 UG
  22. PANTOPRAZOLE SODIUM [Concomitant]
     Active Substance: PANTOPRAZOLE SODIUM
     Indication: Product used for unknown indication
     Dosage: 40 MG , 1 D
  23. PANTOPRAZOLE SODIUM [Concomitant]
     Active Substance: PANTOPRAZOLE SODIUM
     Indication: Product used for unknown indication
     Dosage: UNK
  24. RANITIDINE [Concomitant]
     Active Substance: RANITIDINE
     Indication: Product used for unknown indication
     Dosage: 150 MG , BID
  25. SPIRIVA [Concomitant]
     Active Substance: TIOTROPIUM BROMIDE MONOHYDRATE
     Indication: Product used for unknown indication
  26. SPIRIVA [Concomitant]
     Active Substance: TIOTROPIUM BROMIDE MONOHYDRATE
     Indication: Product used for unknown indication
     Dosage: 2 DF , 1 D , 18 UG
  27. TERAZOSIN [Concomitant]
     Active Substance: TERAZOSIN HYDROCHLORIDE
     Indication: Product used for unknown indication
     Dosage: 4 MG , 1D
  28. UNIPHYL [Concomitant]
     Active Substance: THEOPHYLLINE ANHYDROUS
     Indication: Product used for unknown indication
     Dosage: 200 MG , 1 D
  29. ZOPICLONE [Concomitant]
     Active Substance: ZOPICLONE
     Indication: Product used for unknown indication
     Dosage: 5.0MG UNKNOWN
  30. ZOPICLONE [Concomitant]
     Active Substance: ZOPICLONE
     Indication: Product used for unknown indication
     Dosage: 7.5 MG , 1D AT BEDTIME7.5MG UNKNOWN
  31. CYMBALTA [Concomitant]
     Active Substance: DULOXETINE HYDROCHLORIDE
     Indication: Pain
     Dosage: UNK
  32. REACTINE [Concomitant]
     Indication: Product used for unknown indication
     Dosage: UNK, UNK, Z
  33. VITAMIN D [Concomitant]
     Active Substance: VITAMIN D NOS
     Indication: Product used for unknown indication
     Dosage: UNK

REACTIONS (59)
  - Blood pressure fluctuation [Unknown]
  - Blood pressure increased [Unknown]
  - Urticaria [Unknown]
  - Aphonia [Unknown]
  - Apnoea [Unknown]
  - Asthenia [Unknown]
  - Asthma [Unknown]
  - Back disorder [Unknown]
  - Back pain [Unknown]
  - Burning sensation [Unknown]
  - Chest discomfort [Recovering/Resolving]
  - Conjunctivitis [Unknown]
  - Cough [Unknown]
  - Dizziness [Unknown]
  - Dry eye [Not Recovered/Not Resolved]
  - Dyspepsia [Unknown]
  - Dyspnoea [Unknown]
  - Dyspnoea exertional [Unknown]
  - Eosinophilia [Unknown]
  - Eye paraesthesia [Unknown]
  - Fatigue [Unknown]
  - Gastrooesophageal reflux disease [Unknown]
  - Headache [Unknown]
  - Hepatic neoplasm [Unknown]
  - Hyperhidrosis [Unknown]
  - Hypertension [Recovering/Resolving]
  - Hyperventilation [Not Recovered/Not Resolved]
  - Hypoaesthesia [Recovered/Resolved]
  - Iron deficiency anaemia [Unknown]
  - Muscle spasms [Unknown]
  - Nasal congestion [Unknown]
  - Nasal dryness [Unknown]
  - Nausea [Unknown]
  - Obesity [Recovering/Resolving]
  - Pain [Unknown]
  - Painful respiration [Unknown]
  - Palpitations [Unknown]
  - Performance status decreased [Unknown]
  - Rales [Unknown]
  - Regurgitation [Unknown]
  - Respiration abnormal [Unknown]
  - Respiratory disorder [Not Recovered/Not Resolved]
  - Rhinorrhoea [Unknown]
  - Sarcoidosis [Unknown]
  - Sleep apnoea syndrome [Unknown]
  - Sputum discoloured [Unknown]
  - Tachypnoea [Unknown]
  - Type 2 diabetes mellitus [Recovering/Resolving]
  - Upper respiratory tract infection [Unknown]
  - Wheezing [Unknown]
  - Bronchiectasis [Unknown]
  - Exercise tolerance decreased [Unknown]
  - Hypochromic anaemia [Unknown]
  - Nephrolithiasis [Unknown]
  - Renal pain [Unknown]
  - Weight decreased [Unknown]
  - Computerised tomogram abnormal [Unknown]
  - Drug ineffective [Unknown]
  - Metabolic surgery [Unknown]

NARRATIVE: CASE EVENT DATE: 20090101
